FAERS Safety Report 5858421-6 (Version None)
Quarter: 2008Q3

REPORT INFORMATION
  Report Type: 
  Country: None (occurrence: None)
  Receive Date: 20080822
  Receipt Date: 20080814
  Transmission Date: 20090109
  Serious: Yes (Other)
  Sender: FDA-Public Use
  Company Number: GXKR2008GB07698

PATIENT
  Age: 55 Year
  Sex: Female

DRUGS (4)
  1. RAMIPRIL [Suspect]
     Indication: HYPERTENSION
     Dosage: 5 MG, ORAL
     Route: 048
     Dates: start: 20060928, end: 20080730
  2. BECLOMETHASONE DIPROPIONATE [Concomitant]
  3. BENDROFLUAZIDE (BENDROFLUMETHIAZIDE) [Concomitant]
  4. SALBUTAMOL (SALBUTAMOL) [Concomitant]

REACTIONS (1)
  - ALOPECIA [None]
